FAERS Safety Report 15262096 (Version 1)
Quarter: 2018Q3

REPORT INFORMATION
  Report Type: Report from Study
  Country: US (occurrence: US)
  Receive Date: 20180809
  Receipt Date: 20180809
  Transmission Date: 20181010
  Serious: Yes (Other)
  Sender: FDA-Public Use
  Company Number: US-BAYER-2018-037497

PATIENT
  Age: 64 Year
  Sex: Male

DRUGS (1)
  1. STIVARGA [Suspect]
     Active Substance: REGORAFENIB
     Indication: COLON CANCER
     Dosage: TAKE 160MG FOR 21 OF 28 DAYS
     Route: 048
     Dates: start: 20180213

REACTIONS (20)
  - Functional gastrointestinal disorder [None]
  - Palmar-plantar erythrodysaesthesia syndrome [Recovering/Resolving]
  - Fatigue [Recovering/Resolving]
  - Pre-existing condition improved [None]
  - Constipation [None]
  - Dysphonia [None]
  - Blood pressure increased [Not Recovered/Not Resolved]
  - Asthenia [Recovering/Resolving]
  - Hypertension [Recovering/Resolving]
  - Normocytic anaemia [None]
  - Diarrhoea [None]
  - Colon cancer [None]
  - Pain [Recovering/Resolving]
  - Liver function test increased [None]
  - Vitamin D decreased [None]
  - Pain in extremity [Not Recovered/Not Resolved]
  - Normochromic anaemia [None]
  - Fatigue [Recovering/Resolving]
  - Asthenia [Recovering/Resolving]
  - Blood pressure increased [Not Recovered/Not Resolved]

NARRATIVE: CASE EVENT DATE: 2018
